FAERS Safety Report 13860178 (Version 2)
Quarter: 2017Q4

REPORT INFORMATION
  Report Type: Spontaneous
  Country: DE (occurrence: DE)
  Receive Date: 20170811
  Receipt Date: 20171006
  Transmission Date: 20180320
  Serious: Yes (Other)
  Sender: FDA-Public Use
  Company Number: DE-REGENERON PHARMACEUTICALS, INC.-2017-20030

PATIENT

DRUGS (1)
  1. EYLEA [Suspect]
     Active Substance: AFLIBERCEPT
     Indication: PRODUCT USED FOR UNKNOWN INDICATION
     Dosage: DOSE, FREQUENCY AND TOTAL NUMBER OF INJECTIONS WERE NOT REPORTED

REACTIONS (3)
  - Visual impairment [Unknown]
  - Retinal haemorrhage [Unknown]
  - Retinal pigment epithelial tear [Unknown]
